FAERS Safety Report 4588428-0 (Version None)
Quarter: 2005Q1

REPORT INFORMATION
  Report Type: 
  Country: None (occurrence: None)
  Receive Date: 20050215
  Receipt Date: 20050215
  Transmission Date: 20050727
  Serious: Yes (Hospitalization, Disabling)
  Sender: FDA-Public Use
  Company Number: None

PATIENT
  Age: 56 Year
  Sex: Male
  Weight: 92.9874 kg

DRUGS (5)
  1. LOPID [Suspect]
     Indication: BLOOD CHOLESTEROL INCREASED
     Dosage: 600 MG 2X / DAY BY MOUTH
     Route: 048
  2. ZOCOR [Suspect]
     Indication: BLOOD CHOLESTEROL INCREASED
     Dosage: 20 MG 1X / DAY BY MOUTH
     Route: 048
  3. DOCOSATE SODIUM [Concomitant]
  4. TERAZOSIN HCL [Concomitant]
  5. IBUPROFEN [Concomitant]

REACTIONS (9)
  - ASTHENIA [None]
  - CARDIAC DISORDER [None]
  - CONTRAINDICATION TO MEDICAL TREATMENT [None]
  - CORONARY ARTERY OCCLUSION [None]
  - IMPAIRED WORK ABILITY [None]
  - MUSCLE INJURY [None]
  - MYALGIA [None]
  - MYOCARDIAL INFARCTION [None]
  - MYOPATHY [None]
